FAERS Safety Report 11045742 (Version 3)
Quarter: 2023Q1

REPORT INFORMATION
  Report Type: Spontaneous
  Country: CA (occurrence: CA)
  Receive Date: 20150417
  Receipt Date: 20230213
  Transmission Date: 20230417
  Serious: Yes (Death, Hospitalization, Other)
  Sender: FDA-Public Use
  Company Number: CA-MERCK-1504CAN015029

PATIENT
  Age: 65 Year
  Sex: Female
  Weight: 67.12 kg

DRUGS (11)
  1. JANUVIA [Suspect]
     Active Substance: SITAGLIPTIN PHOSPHATE
     Indication: Type 2 diabetes mellitus
     Dosage: 100 MILLIGRAM, QD
     Route: 048
     Dates: start: 20131210, end: 20131212
  2. HYDROCHLOROTHIAZIDE [Concomitant]
     Active Substance: HYDROCHLOROTHIAZIDE
     Dosage: UNK, DAILY (DIE)
     Route: 048
  3. LISINOPRIL [Concomitant]
     Active Substance: LISINOPRIL
     Dosage: UNK, DAILY (DIE)
     Route: 048
  4. AMINOSALICYLIC ACID [Concomitant]
     Active Substance: AMINOSALICYLIC ACID
     Dosage: 2400 MG, BID,( 6 TABLETS BID)
     Route: 048
  5. TIMOLOL MALEATE\TRAVOPROST [Concomitant]
     Active Substance: TIMOLOL MALEATE\TRAVOPROST
     Dosage: 1 GTT OU, DAILY (DIE)
  6. PANTOPRAZOLE [Concomitant]
     Active Substance: PANTOPRAZOLE
     Dosage: UNK, DAILY (DIE)
     Route: 048
  7. PAROXETINE [Concomitant]
     Active Substance: PAROXETINE
     Dosage: UNK, DAILY (DIE)
     Route: 048
  8. EURO-FER [Concomitant]
     Dosage: UNK, BID
     Route: 048
  9. SIMVASTATIN [Concomitant]
     Active Substance: SIMVASTATIN
     Dosage: UNK, DAILY (DIE)
  10. GLYBURIDE [Concomitant]
     Active Substance: GLYBURIDE
     Dosage: UNK, DAILY (DIE)
     Route: 048
  11. METFORMIN [Concomitant]
     Active Substance: METFORMIN HYDROCHLORIDE
     Dosage: UNK UNK, BID

REACTIONS (2)
  - Death [Fatal]
  - Pancreatitis [Unknown]

NARRATIVE: CASE EVENT DATE: 20131213
